FAERS Safety Report 11645578 (Version 4)
Quarter: 2015Q4

REPORT INFORMATION
  Report Type: Spontaneous
  Country: TR (occurrence: TR)
  Receive Date: 20151020
  Receipt Date: 20151201
  Transmission Date: 20160304
  Serious: Yes (Other)
  Sender: FDA-Public Use
  Company Number: TR-PFIZER INC-2015338328

PATIENT
  Age: 51 Year
  Sex: Female

DRUGS (2)
  1. SUTENT [Suspect]
     Active Substance: SUNITINIB MALATE
     Indication: METASTATIC RENAL CELL CARCINOMA
     Dosage: 12.5 MG, UNK
     Dates: end: 201506
  2. DEPAKIN [Concomitant]
     Active Substance: VALPROATE SODIUM
     Indication: CEREBRAL DISORDER
     Dosage: UNK

REACTIONS (5)
  - Hypothyroidism [Unknown]
  - Thrombocytopenia [Unknown]
  - Metastatic renal cell carcinoma [Unknown]
  - Disease progression [Unknown]
  - Pancytopenia [Not Recovered/Not Resolved]

NARRATIVE: CASE EVENT DATE: 2015
